FAERS Safety Report 5744824-7 (Version None)
Quarter: 2008Q2

REPORT INFORMATION
  Report Type: 
  Country: None (occurrence: None)
  Receive Date: 20080520
  Receipt Date: 20080509
  Transmission Date: 20081010
  Serious: Yes (Hospitalization)
  Sender: FDA-Public Use
  Company Number: FR-PFIZER INC-2008040940

PATIENT
  Age: 58 Year
  Sex: Male

DRUGS (3)
  1. DALACINE [Suspect]
     Indication: INFECTION
     Dosage: DAILY DOSE:1800MG-FREQ:INTERVAL: EVERYDAY
     Route: 048
     Dates: start: 20071213, end: 20080106
  2. VANCOMYCIN [Suspect]
     Indication: INFECTION
     Dosage: DAILY DOSE:3GRAM-FREQ:INTERVAL: EVERYDAY
     Route: 042
     Dates: start: 20071212, end: 20071217
  3. VANCOMYCIN [Suspect]
     Dosage: DAILY DOSE:3.5MG
     Route: 042
     Dates: start: 20071218, end: 20080106

REACTIONS (1)
  - DRUG RASH WITH EOSINOPHILIA AND SYSTEMIC SYMPTOMS [None]
